FAERS Safety Report 6247225-0 (Version None)
Quarter: 2009Q2

REPORT INFORMATION
  Report Type: 
  Country: None (occurrence: None)
  Receive Date: 20090626
  Receipt Date: 20090616
  Transmission Date: 20091009
  Serious: Yes (Other)
  Sender: FDA-Public Use
  Company Number: JP-PFIZER INC-2009223159

PATIENT
  Age: 60 Year

DRUGS (11)
  1. ZYVOX [Suspect]
     Indication: STAPHYLOCOCCAL INFECTION
     Dosage: 600 MG DAY
     Route: 048
     Dates: start: 20090601, end: 20090609
  2. BAKTAR [Concomitant]
     Dosage: UNK
     Route: 048
  3. TAKEPRON [Concomitant]
  4. NORVASC [Concomitant]
     Dosage: UNK
  5. HALCION [Concomitant]
  6. EURODIN [Concomitant]
  7. PURSENNID [Concomitant]
  8. SOSEGON [Concomitant]
  9. BLADDERON [Concomitant]
  10. LEPETAN [Concomitant]
  11. VOLTAREN [Concomitant]

REACTIONS (8)
  - AGITATION [None]
  - ASTHENIA [None]
  - BLOOD PRESSURE INCREASED [None]
  - CHILLS [None]
  - INSOMNIA [None]
  - POLLAKIURIA [None]
  - POLYURIA [None]
  - THIRST [None]
